FAERS Safety Report 14668088 (Version 1)
Quarter: 2018Q1

REPORT INFORMATION
  Report Type: Report from Study
  Country: ES (occurrence: ES)
  Receive Date: 20180322
  Receipt Date: 20180322
  Transmission Date: 20180509
  Serious: Yes (Hospitalization)
  Sender: FDA-Public Use
  Company Number: ES-CONCORDIA PHARMACEUTICALS INC.-E2B_00010617

PATIENT
  Age: 64 Year
  Sex: Male
  Weight: 62.5 kg

DRUGS (24)
  1. MEGESTROL [Concomitant]
     Active Substance: MEGESTROL
     Dosage: DATE OF LAST DOSE PRIOR TO SAE: 14/SEP/2016
     Route: 065
     Dates: start: 20170216
  2. METRONIDAZOLE. [Concomitant]
     Active Substance: METRONIDAZOLE
     Route: 065
     Dates: start: 20170525
  3. SULFAMETHOXAZOLE/TRIMETHOPRIM [Concomitant]
     Active Substance: SULFAMETHOXAZOLE\TRIMETHOPRIM
     Dosage: DATE OF LAST DOSE PRIOR TO SAE: 14/SEP/2016
     Route: 065
     Dates: start: 20170117
  4. RITUXIMAB. [Suspect]
     Active Substance: RITUXIMAB
     Indication: CHRONIC LYMPHOCYTIC LEUKAEMIA
     Dosage: DATE OF LAST DOSE PRIOR TO SAE: 14/SEP/2016
     Route: 065
     Dates: start: 2016
  5. OMEPRAZOLE. [Concomitant]
     Active Substance: OMEPRAZOLE
     Dosage: DATE OF LAST DOSE PRIOR TO SAE: 14/SEP/2016
     Route: 065
     Dates: start: 2007
  6. SERTRALINE [Concomitant]
     Active Substance: SERTRALINE HYDROCHLORIDE
     Dosage: DATE OF LAST DOSE PRIOR TO SAE: 14/SEP/2016
     Route: 065
     Dates: start: 20161120
  7. CYCLOPHOSPHAMIDE. [Suspect]
     Active Substance: CYCLOPHOSPHAMIDE
     Indication: CHRONIC LYMPHOCYTIC LEUKAEMIA
     Dosage: DATE OF LAST DOSE PRIOR TO SAE: 14/SEP/2016
     Route: 065
     Dates: start: 2016
  8. SEPTRIN FORTE [Concomitant]
     Active Substance: SULFAMETHOXAZOLE\TRIMETHOPRIM
     Route: 065
     Dates: start: 20170117
  9. FLUCONAZOLE. [Concomitant]
     Active Substance: FLUCONAZOLE
     Dosage: DATE OF LAST DOSE PRIOR TO SAE: 14/SEP/2016
     Route: 065
     Dates: start: 20170117
  10. POSACONAZOLE [Concomitant]
     Active Substance: POSACONAZOLE
     Dosage: 300 MG/DAY
     Route: 065
     Dates: start: 20170528
  11. ALLOPURINOL. [Concomitant]
     Active Substance: ALLOPURINOL
     Route: 065
     Dates: start: 20160428
  12. DOXORUBICIN [Suspect]
     Active Substance: DOXORUBICIN
     Indication: CHRONIC LYMPHOCYTIC LEUKAEMIA
     Dosage: DATE OF LAST DOSE PRIOR TO SAE: 14/SEP/2016
     Route: 065
     Dates: start: 2016
  13. BENDAMUSTINE [Suspect]
     Active Substance: BENDAMUSTINE
     Indication: CHRONIC LYMPHOCYTIC LEUKAEMIA
     Dosage: DATE OF LAST DOSE PRIOR TO SAE: 14/SEP/2016 AND ON 28/APR/2016
     Route: 042
     Dates: start: 20160427
  14. MEGESTROL [Concomitant]
     Active Substance: MEGESTROL
     Dosage: DATE OF LAST DOSE PRIOR TO SAE: 14/SEP/2016
     Dates: start: 20170216
  15. METOCLOPRAMIDE. [Concomitant]
     Active Substance: METOCLOPRAMIDE
     Route: 065
     Dates: start: 20160425
  16. TRAMADOL. [Concomitant]
     Active Substance: TRAMADOL
     Route: 065
     Dates: start: 20170525
  17. OBINUTUZUMAB. [Suspect]
     Active Substance: OBINUTUZUMAB
     Indication: CHRONIC LYMPHOCYTIC LEUKAEMIA
     Dosage: VIAL. LAST DOSE PRIOR TO SAE 26/APR/2016 AND ON 14/SEP/2016
     Route: 042
     Dates: start: 20160426
  18. PREDNISOLONE. [Suspect]
     Active Substance: PREDNISOLONE
     Indication: CHRONIC LYMPHOCYTIC LEUKAEMIA
     Dosage: DATE OF LAST DOSE PRIOR TO SAE: 14/SEP/2016
     Route: 065
     Dates: start: 2016
  19. VINCRISTINE [Suspect]
     Active Substance: VINCRISTINE
     Indication: CHRONIC LYMPHOCYTIC LEUKAEMIA
     Dosage: DATE OF LAST DOSE PRIOR TO SAE: 14/SEP/2016
     Route: 065
     Dates: start: 2016
  20. ACICLOVIR [Concomitant]
     Active Substance: ACYCLOVIR
     Dosage: DATE OF LAST DOSE PRIOR TO SAE: 14/SEP/2016
     Route: 065
     Dates: start: 2017
  21. OMEPRAZOLE. [Concomitant]
     Active Substance: OMEPRAZOLE
     Dosage: DATE OF LAST DOSE PRIOR TO SAE: 14/SEP/2016
     Dates: start: 2007
  22. SERTRALINE [Concomitant]
     Active Substance: SERTRALINE HYDROCHLORIDE
     Route: 065
     Dates: start: 20160620
  23. PREDNISOLONE. [Suspect]
     Active Substance: PREDNISOLONE
     Indication: CHRONIC LYMPHOCYTIC LEUKAEMIA
     Dosage: DATE OF LAST DOSE PRIOR TO SAE: 14/SEP/2016
     Route: 065
     Dates: start: 2016
  24. ALLOPURINOL. [Concomitant]
     Active Substance: ALLOPURINOL
     Dates: start: 20160425, end: 20160425

REACTIONS (2)
  - Neutropenia [Recovered/Resolved]
  - Febrile neutropenia [Recovered/Resolved]

NARRATIVE: CASE EVENT DATE: 20160503
